FAERS Safety Report 20183391 (Version 1)
Quarter: 2021Q4

REPORT INFORMATION
  Report Type: Spontaneous
  Country: US (occurrence: US)
  Receive Date: 20211214
  Receipt Date: 20211214
  Transmission Date: 20220303
  Serious: No
  Sender: FDA-Public Use
  Company Number: US-ABBVIE-20K-163-3693434-00

PATIENT

DRUGS (1)
  1. IMBRUVICA [Suspect]
     Active Substance: IBRUTINIB
     Indication: Product used for unknown indication
     Route: 048
     Dates: start: 202009

REACTIONS (5)
  - Depression [Unknown]
  - Skin irritation [Unknown]
  - Pruritus [Unknown]
  - Rash [Unknown]
  - Insomnia [Unknown]

NARRATIVE: CASE EVENT DATE: 20201213
